FAERS Safety Report 15888100 (Version 1)
Quarter: 2019Q1

REPORT INFORMATION
  Report Type: Spontaneous
  Country: US (occurrence: US)
  Receive Date: 20190130
  Receipt Date: 20190130
  Transmission Date: 20190417
  Serious: No
  Sender: FDA-Public Use
  Company Number: US-PFIZER INC-2019043881

PATIENT
  Sex: Female

DRUGS (1)
  1. XELJANZ XR [Suspect]
     Active Substance: TOFACITINIB CITRATE
     Dosage: 11 MG, DAILY, [EVERY DAY ]
     Route: 048
     Dates: start: 201407

REACTIONS (2)
  - Hyperlipidaemia [Unknown]
  - Hypercholesterolaemia [Unknown]
